FAERS Safety Report 5623183-4 (Version None)
Quarter: 2008Q1

REPORT INFORMATION
  Report Type: 
  Country: None (occurrence: None)
  Receive Date: 20080207
  Receipt Date: 20080128
  Transmission Date: 20080703
  Serious: Yes (Other)
  Sender: FDA-Public Use
  Company Number: 2008S1000007

PATIENT
  Age: 6 Month
  Sex: Female

DRUGS (1)
  1. VERDESO [Suspect]
     Indication: ECZEMA
     Dosage: 0.05 PCT; X1; TOP
     Route: 061
     Dates: start: 20071213, end: 20071213

REACTIONS (3)
  - APPLICATION SITE ERYTHEMA [None]
  - APPLICATION SITE IRRITATION [None]
  - APPLICATION SITE PAIN [None]
